FAERS Safety Report 8398212-8 (Version None)
Quarter: 2012Q2

REPORT INFORMATION
  Report Type: 
  Country: None (occurrence: None)
  Receive Date: 20120531
  Receipt Date: 20120524
  Transmission Date: 20120825
  Serious: Yes (Other)
  Sender: FDA-Public Use
  Company Number: PHEH2012US007304

PATIENT
  Sex: Female
  Weight: 78.005 kg

DRUGS (7)
  1. LYRICA [Concomitant]
     Dosage: 150 MG, BID
     Route: 048
  2. MIRALAX [Concomitant]
     Dosage: UNK UKN, UNK
  3. BACLOFEN [Concomitant]
     Dosage: UNK UKN, UNK
  4. GILENYA [Suspect]
     Indication: MULTIPLE SCLEROSIS
     Dosage: 0.5 MG, QD
     Route: 048
     Dates: start: 20120124
  5. ZOLOFT [Concomitant]
     Dosage: UNK UKN, UNK
  6. PRAVASTATIN [Concomitant]
     Dosage: UNK UKN, UNK
  7. LISINOPRIL [Concomitant]
     Dosage: UNK UKN, UNK

REACTIONS (9)
  - DYSPNOEA [None]
  - FATIGUE [None]
  - ORTHOSTATIC HYPOTENSION [None]
  - DIZZINESS POSTURAL [None]
  - GASTROOESOPHAGEAL REFLUX DISEASE [None]
  - VISION BLURRED [None]
  - LOSS OF CONSCIOUSNESS [None]
  - CYSTITIS [None]
  - HEART RATE DECREASED [None]
